FAERS Safety Report 12140516 (Version 1)
Quarter: 2016Q1

REPORT INFORMATION
  Report Type: Spontaneous
  Country: JP (occurrence: JP)
  Receive Date: 20160303
  Receipt Date: 20160303
  Transmission Date: 20160526
  Serious: Yes (Death, Other)
  Sender: FDA-Public Use
  Company Number: JP-GLAXOSMITHKLINE-JP2016JPN029513

PATIENT

DRUGS (1)
  1. FLOLAN [Suspect]
     Active Substance: EPOPROSTENOL SODIUM
     Route: 042

REACTIONS (2)
  - Device related infection [Fatal]
  - Septic shock [Fatal]
